FAERS Safety Report 9375161 (Version 2)
Quarter: 2013Q3

REPORT INFORMATION
  Report Type: Spontaneous
  Country: US (occurrence: US)
  Receive Date: 20130628
  Receipt Date: 20130828
  Transmission Date: 20140515
  Serious: Yes (Hospitalization)
  Sender: FDA-Public Use
  Company Number: US-JNJFOC-20130614181

PATIENT
  Age: 44 Year
  Sex: Female
  Weight: 75 kg

DRUGS (5)
  1. PREZISTA [Suspect]
     Indication: HIV INFECTION
     Route: 048
     Dates: start: 201202
  2. NORVIR [Suspect]
     Indication: HIV INFECTION
     Route: 048
     Dates: start: 201202
  3. ZIAGEN [Suspect]
     Indication: HIV INFECTION
     Route: 048
     Dates: start: 201202
  4. EFAVIRENZ [Concomitant]
     Indication: HIV INFECTION
     Route: 065
  5. ACYCLOVIR [Concomitant]
     Indication: HERPES VIRUS INFECTION
     Route: 065

REACTIONS (1)
  - Drug reaction with eosinophilia and systemic symptoms [Recovered/Resolved]
